FAERS Safety Report 5318359-X (Version None)
Quarter: 2007Q2

REPORT INFORMATION
  Report Type: 
  Country: None (occurrence: None)
  Receive Date: 20070507
  Receipt Date: 20070420
  Transmission Date: 20071010
  Serious: Yes (Life-Threatening)
  Sender: FDA-Public Use
  Company Number: JP-SHR-JP-2007-013703

PATIENT
  Age: 81 Year
  Sex: Female

DRUGS (1)
  1. PROSCOPE 300 [Suspect]
     Indication: COMPUTERISED TOMOGRAM ABDOMEN
     Dosage: 74 ML, 1 DOSE
     Route: 042
     Dates: start: 20070411, end: 20070411

REACTIONS (1)
  - ANAPHYLACTIC SHOCK [None]
